FAERS Safety Report 6251830-5 (Version None)
Quarter: 2009Q2

REPORT INFORMATION
  Report Type: 
  Country: None (occurrence: None)
  Receive Date: 20090630
  Receipt Date: 20090623
  Transmission Date: 20091009
  Serious: Yes (Hospitalization)
  Sender: FDA-Public Use
  Company Number: FR-BAYER-200924117GPV

PATIENT
  Age: 63 Year
  Sex: Male

DRUGS (6)
  1. IZILOX [Suspect]
     Indication: DRUG USE FOR UNKNOWN INDICATION
     Dosage: 1 DF PER DAY
     Route: 048
     Dates: start: 20090325, end: 20090403
  2. TOPREC [Suspect]
     Indication: DRUG USE FOR UNKNOWN INDICATION
     Route: 048
     Dates: start: 20090325, end: 20090403
  3. GLUCOPHAGE [Suspect]
     Indication: TYPE 2 DIABETES MELLITUS
     Route: 065
  4. AMOXICILLIN TRIHYDRATE [Suspect]
     Indication: SINUSITIS
     Route: 065
     Dates: start: 20090101, end: 20090101
  5. QUININE VITAMINE C GRAND [Suspect]
     Indication: DRUG USE FOR UNKNOWN INDICATION
     Route: 048
     Dates: start: 20090325, end: 20090403
  6. AMARYL [Suspect]
     Indication: TYPE 2 DIABETES MELLITUS
     Route: 065

REACTIONS (1)
  - NEUTROPENIA [None]
